FAERS Safety Report 4283144-7 (Version None)
Quarter: 2004Q1

REPORT INFORMATION
  Report Type: 
  Country: None (occurrence: None)
  Receive Date: 20040129
  Receipt Date: 20031103
  Transmission Date: 20041129
  Serious: Yes (Death, Life-Threatening, Hospitalization)
  Sender: FDA-Public Use
  Company Number: M2004.6915

PATIENT
  Age: 63 Year
  Sex: Male

DRUGS (8)
  1. RANITIDINE [Suspect]
     Indication: PROPHYLAXIS AGAINST GASTROINTESTINAL ULCER
     Dosage: UNK
     Dates: start: 20010911
  2. ACETYLCYSTEINE [Concomitant]
  3. BUDESONIDE [Concomitant]
  4. TERBUTALINE SULFATE [Concomitant]
  5. ISOSORBIDE MONITRATE [Concomitant]
  6. IPATROPIUM BROMIDE/FENOTEROL [Concomitant]
  7. THEOPHYLLINE [Concomitant]
  8. FUROSEMIDE [Concomitant]
     Route: 042

REACTIONS (2)
  - PNEUMONIA [None]
  - SKIN DISORDER [None]
